FAERS Safety Report 19900914 (Version 1)
Quarter: 2021Q3

REPORT INFORMATION
  Report Type: Spontaneous
  Country: US (occurrence: US)
  Receive Date: 20210930
  Receipt Date: 20210930
  Transmission Date: 20211014
  Serious: Yes (Other)
  Sender: FDA-Public Use
  Company Number: None

PATIENT
  Age: 44 Year
  Sex: Male
  Weight: 70 kg

DRUGS (11)
  1. BARICITINIB. [Suspect]
     Active Substance: BARICITINIB
     Indication: COVID-19
     Route: 048
     Dates: start: 20210926, end: 20210927
  2. IOHEXOL 350 MG IODINE/100 ML [Concomitant]
     Dates: start: 20210925, end: 20210925
  3. MAGNESIUM GLUCONATE 54 MG [Concomitant]
     Dates: start: 20210926, end: 20210928
  4. VANCOMYCIN [Concomitant]
     Active Substance: VANCOMYCIN
     Dates: start: 20210925, end: 20210926
  5. DEXAMETHASONE 6 MG [Concomitant]
     Dates: start: 20210925
  6. BREO ELLIPTA (FLUTICASONE FUROATE?VILANTEROL) 200?25 MCG/DOSE [Concomitant]
     Dates: start: 20210926, end: 20210927
  7. VITAMIN D3 1000 IU [Concomitant]
     Dates: start: 20210926
  8. HEPARIN 100 UNITS/ML INFUSION [Concomitant]
     Dates: start: 20210925, end: 20210926
  9. ENOXAPARIN 70 MG [Concomitant]
     Dates: start: 20210926
  10. PERFLUTREN LIPID MICROSPHERE INJECTION [Concomitant]
     Dates: start: 20210927, end: 20210927
  11. PIPERCILLIN/TAZOBACTAM [Concomitant]
     Active Substance: PIPERACILLIN SODIUM\TAZOBACTAM SODIUM
     Dates: start: 20210925, end: 20210926

REACTIONS (3)
  - Alanine aminotransferase increased [None]
  - Aspartate aminotransferase increased [None]
  - Blood alkaline phosphatase increased [None]

NARRATIVE: CASE EVENT DATE: 20210927
